FAERS Safety Report 15414975 (Version 3)
Quarter: 2018Q4

REPORT INFORMATION
  Report Type: Spontaneous
  Country: US (occurrence: US)
  Receive Date: 20180921
  Receipt Date: 20181003
  Transmission Date: 20190204
  Serious: Yes (Death)
  Sender: FDA-Public Use
  Company Number: US-FRESENIUS MEDICAL CARE RENAL THERAPIES GROUP-FMC-1809-001699

PATIENT
  Age: 64 Year
  Sex: Female
  Weight: 73.3 kg

DRUGS (17)
  1. COREG [Concomitant]
     Active Substance: CARVEDILOL
  2. GENTAMICIN. [Concomitant]
     Active Substance: GENTAMICIN
  3. XANAX [Concomitant]
     Active Substance: ALPRAZOLAM
  4. ATORVASTATIN [Concomitant]
     Active Substance: ATORVASTATIN
  5. CALCITRIOL. [Concomitant]
     Active Substance: CALCITRIOL
  6. LISINOPRIL. [Concomitant]
     Active Substance: LISINOPRIL
  7. CALCITRIOL. [Concomitant]
     Active Substance: CALCITRIOL
  8. LANTUS SOLOSTAR [Concomitant]
     Active Substance: INSULIN GLARGINE
  9. ZOFRAN [Concomitant]
     Active Substance: ONDANSETRON HYDROCHLORIDE
  10. ASPIRIN. [Concomitant]
     Active Substance: ASPIRIN
  11. PHENERGAN [Concomitant]
     Active Substance: PROMETHAZINE HYDROCHLORIDE
  12. RENAPLEX [Concomitant]
  13. FUROSEMIDE. [Concomitant]
     Active Substance: FUROSEMIDE
  14. PLAVIX [Concomitant]
     Active Substance: CLOPIDOGREL BISULFATE
  15. TYLENOL [Concomitant]
     Active Substance: ACETAMINOPHEN
  16. VELPHORO [Concomitant]
     Active Substance: FERRIC OXYHYDROXIDE
  17. DELFLEX [Suspect]
     Active Substance: CALCIUM CHLORIDE\DEXTROSE\MAGNESIUM CHLORIDE\SODIUM CHLORIDE\SODIUM LACTATE
     Indication: END STAGE RENAL DISEASE
     Dosage: FOUR 2000ML FILL EXCHANGES AND LAST FILL OF 1000ML
     Route: 033
     Dates: start: 20180202

REACTIONS (1)
  - Death [Fatal]

NARRATIVE: CASE EVENT DATE: 20180916
